FAERS Safety Report 5988367-4 (Version None)
Quarter: 2008Q4

REPORT INFORMATION
  Report Type: 
  Country: None (occurrence: None)
  Receive Date: 20081204
  Receipt Date: 20081119
  Transmission Date: 20090506
  Serious: Yes (Death)
  Sender: FDA-Public Use
  Company Number: KV200800335

PATIENT
  Age: 56 Year
  Sex: Female

DRUGS (2)
  1. MORPHINE SULFATE [Suspect]
     Indication: BACK PAIN
     Dosage: 30 MG, ORAL
     Route: 048
     Dates: end: 20070901
  2. MORPHINE SULFATE [Suspect]
     Indication: BACK PAIN
     Dosage: 60 MG, ORAL
     Route: 048
     Dates: end: 20070901

REACTIONS (4)
  - ACCIDENTAL DEATH [None]
  - DRUG TOXICITY [None]
  - OVERDOSE [None]
  - PRODUCT QUALITY ISSUE [None]
